FAERS Safety Report 18441289 (Version 1)
Quarter: 2020Q4

REPORT INFORMATION
  Report Type: Spontaneous
  Country: US (occurrence: US)
  Receive Date: 20201029
  Receipt Date: 20201029
  Transmission Date: 20210114
  Serious: Yes (Disabling)
  Sender: FDA-Public Use
  Company Number: None

PATIENT
  Age: 8 Week
  Sex: Female
  Weight: 58.5 kg

DRUGS (1)
  1. LORYNA [Suspect]
     Active Substance: DROSPIRENONE\ETHINYL ESTRADIOL

REACTIONS (7)
  - Hypoaesthesia [None]
  - Pain in extremity [None]
  - Arthralgia [None]
  - Decreased activity [None]
  - Sciatica [None]
  - Therapy cessation [None]
  - Myositis [None]

NARRATIVE: CASE EVENT DATE: 20200801
